FAERS Safety Report 11918516 (Version 3)
Quarter: 2017Q2

REPORT INFORMATION
  Report Type: Report from Study
  Country: BE (occurrence: BE)
  Receive Date: 20160115
  Receipt Date: 20170403
  Transmission Date: 20170829
  Serious: Yes (Hospitalization)
  Sender: FDA-Public Use
  Company Number: BE-ROCHE-1692593

PATIENT
  Age: 54 Year
  Sex: Male
  Weight: 87.4 kg

DRUGS (16)
  1. DUVELISIB [Suspect]
     Active Substance: DUVELISIB
     Indication: B-CELL LYMPHOMA
     Dosage: LAST DOSE PRIOR TO SAE^S: 17/NOV/2015?DOSE HELD AND THEN RESTARTED 31/DEC/2015.
     Route: 048
     Dates: start: 20151007
  2. PANTOMED (BELGIUM) [Concomitant]
     Route: 042
     Dates: start: 20151123, end: 20151127
  3. LOCOID [Concomitant]
     Active Substance: HYDROCORTISONE BUTYRATE
     Indication: ERYTHEMA
     Route: 065
     Dates: start: 20151124, end: 20151230
  4. PREDNISOLONE. [Concomitant]
     Active Substance: PREDNISOLONE
     Indication: NASOPHARYNGITIS
     Route: 048
     Dates: start: 20151230, end: 20151230
  5. FRAXIPARINE [Concomitant]
     Active Substance: NADROPARIN CALCIUM
     Route: 058
     Dates: start: 20151123, end: 20151127
  6. CETRIZINE [Concomitant]
     Active Substance: CETIRIZINE HYDROCHLORIDE
     Route: 048
     Dates: start: 20151007, end: 20151007
  7. LORMETAZEPAM [Suspect]
     Active Substance: LORMETAZEPAM
     Route: 048
     Dates: start: 20151223
  8. ACYCLOVIR. [Concomitant]
     Active Substance: ACYCLOVIR
     Route: 048
     Dates: start: 20151001
  9. LORMETAZEPAM [Suspect]
     Active Substance: LORMETAZEPAM
     Indication: INSOMNIA
     Route: 048
     Dates: start: 20150930, end: 20151123
  10. TRAMADOL. [Concomitant]
     Active Substance: TRAMADOL
     Indication: ABDOMINAL PAIN UPPER
     Route: 048
     Dates: start: 20150902
  11. SOLU-MEDROL [Concomitant]
     Active Substance: METHYLPREDNISOLONE SODIUM SUCCINATE
     Route: 042
     Dates: start: 20151007
  12. LITICAN [Concomitant]
     Active Substance: ALIZAPRIDE HYDROCHLORIDE
     Route: 042
     Dates: start: 20151123, end: 20151127
  13. PARACETAMOL [Concomitant]
     Active Substance: ACETAMINOPHEN
     Route: 042
     Dates: start: 20151007
  14. OBINUTUZUMAB [Suspect]
     Active Substance: OBINUTUZUMAB
     Indication: B-CELL LYMPHOMA
     Dosage: LAST DOSE PRIOR TO SAE^S: 04/NOV/2015
     Route: 042
     Dates: start: 20151007
  15. FLEET ENEMA [Concomitant]
     Active Substance: SODIUM PHOSPHATE, DIBASIC\SODIUM PHOSPHATE, MONOBASIC
     Route: 054
     Dates: start: 20151123, end: 20151123
  16. PREDNISOLONE. [Concomitant]
     Active Substance: PREDNISOLONE
     Indication: LYMPHOMA
     Route: 048
     Dates: start: 20150909, end: 20151006

REACTIONS (3)
  - Alanine aminotransferase increased [Recovered/Resolved with Sequelae]
  - Aspartate aminotransferase increased [Recovered/Resolved]
  - Fatigue [Recovered/Resolved]

NARRATIVE: CASE EVENT DATE: 20151123
